FAERS Safety Report 20446772 (Version 4)
Quarter: 2022Q1

REPORT INFORMATION
  Report Type: Spontaneous
  Country: US (occurrence: US)
  Receive Date: 20220208
  Receipt Date: 20220318
  Transmission Date: 20220423
  Serious: No
  Sender: FDA-Public Use
  Company Number: US-GLAXOSMITHKLINE-US2022AMR018005

PATIENT
  Sex: Female

DRUGS (2)
  1. ZEJULA [Suspect]
     Active Substance: NIRAPARIB
     Indication: Ovarian cancer
     Dosage: 200 MG, QD
  2. ZEJULA [Suspect]
     Active Substance: NIRAPARIB
     Dosage: 100 MG ALTERBATING WITH 200 MG DAILY

REACTIONS (5)
  - Nausea [Recovering/Resolving]
  - Constipation [Recovering/Resolving]
  - Platelet count decreased [Unknown]
  - Contusion [Unknown]
  - Off label use [Unknown]
